FAERS Safety Report 18647849 (Version 1)
Quarter: 2020Q4

REPORT INFORMATION
  Report Type: Spontaneous
  Country: US (occurrence: US)
  Receive Date: 20201222
  Receipt Date: 20201222
  Transmission Date: 20210114
  Serious: Yes (Hospitalization, Other)
  Sender: FDA-Public Use
  Company Number: US-GLAXOSMITHKLINE-US2020AMR249309

PATIENT
  Age: 79 Year
  Sex: Male

DRUGS (2)
  1. TRELEGY ELLIPTA [Suspect]
     Active Substance: FLUTICASONE FUROATE\UMECLIDINIUM BROMIDE\VILANTEROL TRIFENATATE
     Indication: CHRONIC OBSTRUCTIVE PULMONARY DISEASE
     Dosage: UNK UNK, QD (100-62.5-25 MCG)
     Route: 065
     Dates: start: 2019
  2. VENTOLIN HFA [Suspect]
     Active Substance: ALBUTEROL SULFATE
     Indication: CHRONIC OBSTRUCTIVE PULMONARY DISEASE
     Dosage: UNK
     Route: 065
     Dates: start: 2019

REACTIONS (6)
  - Cardiac operation [Unknown]
  - Sepsis [Unknown]
  - Influenza [Unknown]
  - Viral infection [Unknown]
  - Pneumonia [Unknown]
  - Bladder cancer [Unknown]

NARRATIVE: CASE EVENT DATE: 20200128
